FAERS Safety Report 13146149 (Version 3)
Quarter: 2017Q1

REPORT INFORMATION
  Report Type: Report from Study
  Country: US (occurrence: US)
  Receive Date: 20170125
  Receipt Date: 20170316
  Transmission Date: 20170428
  Serious: Yes (Hospitalization, Other)
  Sender: FDA-Public Use
  Company Number: US-ASTRAZENECA-2016SF22672

PATIENT
  Age: 23295 Day
  Sex: Female

DRUGS (9)
  1. FERROUS SULFATE. [Concomitant]
     Active Substance: FERROUS SULFATE
  2. VANICREAM [Concomitant]
     Active Substance: TITANIUM DIOXIDE\ZINC OXIDE
  3. ALPRAZOLAM. [Concomitant]
     Active Substance: ALPRAZOLAM
  4. ACTONEL [Concomitant]
     Active Substance: RISEDRONATE SODIUM
     Indication: BONE DISORDER
     Dosage: GENERIC
  5. METOPROLOL TARTRATE. [Suspect]
     Active Substance: METOPROLOL TARTRATE
     Indication: BLOOD PRESSURE ABNORMAL
     Route: 048
  6. MEGESTROL ACETATE. [Concomitant]
     Active Substance: MEGESTROL ACETATE
  7. FOLIC ACID. [Concomitant]
     Active Substance: FOLIC ACID
  8. TAGRISSO [Suspect]
     Active Substance: OSIMERTINIB
     Indication: LUNG NEOPLASM MALIGNANT
     Route: 048
     Dates: start: 20161111
  9. TARCEVA [Concomitant]
     Active Substance: ERLOTINIB HYDROCHLORIDE
     Dosage: EVERY TWO WEEKS

REACTIONS (29)
  - Malignant neoplasm progression [Unknown]
  - Muscle spasms [Not Recovered/Not Resolved]
  - Heart rate increased [Unknown]
  - Decreased appetite [Unknown]
  - Onychoclasis [Unknown]
  - Lung disorder [Unknown]
  - Myalgia [Unknown]
  - Bone disorder [Unknown]
  - Blood pressure fluctuation [Unknown]
  - Tooth infection [Unknown]
  - Chest pain [Unknown]
  - Stomatitis [Unknown]
  - Muscle twitching [Not Recovered/Not Resolved]
  - Hypertension [Unknown]
  - Malaise [Unknown]
  - Rash [Unknown]
  - White blood cell count decreased [Unknown]
  - Loss of consciousness [Unknown]
  - Lymphocyte count decreased [Unknown]
  - Hypotension [Unknown]
  - Constipation [Unknown]
  - Blepharospasm [Not Recovered/Not Resolved]
  - Fatigue [Not Recovered/Not Resolved]
  - Eosinophil count decreased [Unknown]
  - Intentional product misuse [Unknown]
  - Feeling abnormal [Unknown]
  - Nasal dryness [Unknown]
  - Dyspnoea [Unknown]
  - Amnesia [Unknown]

NARRATIVE: CASE EVENT DATE: 20161112
